FAERS Safety Report 5025751-X (Version None)
Quarter: 2006Q2

REPORT INFORMATION
  Report Type: 
  Country: None (occurrence: None)
  Receive Date: 20060614
  Receipt Date: 20050810
  Transmission Date: 20061013
  Serious: No
  Sender: FDA-Public Use
  Company Number: US-BRISTOL-MYERS SQUIBB COMPANY-13071386

PATIENT
  Age: 78 Year
  Sex: Female
  Weight: 56 kg

DRUGS (9)
  1. HALOG OINTMENT 0.1% [Suspect]
     Indication: PSORIASIS
     Route: 061
  2. VERAPAMIL [Suspect]
  3. METOPROLOL [Suspect]
  4. PLAQUENIL [Suspect]
  5. COLCHICINE [Suspect]
  6. LOPID [Suspect]
  7. ACTONEL [Suspect]
  8. THYROXINE [Suspect]
  9. NEXIUM [Suspect]

REACTIONS (2)
  - ALOPECIA [None]
  - PRURITUS [None]
